FAERS Safety Report 13347416 (Version 1)
Quarter: 2017Q1

REPORT INFORMATION
  Report Type: Other
  Country: GB (occurrence: GB)
  Receive Date: 20170317
  Receipt Date: 20170317
  Transmission Date: 20170428
  Serious: Yes (Hospitalization)
  Sender: FDA-Public Use
  Company Number: GB-TAKEDA-2017TJP006045

PATIENT
  Age: 74 Year
  Sex: Female

DRUGS (13)
  1. NYSTATIN. [Concomitant]
     Active Substance: NYSTATIN
     Dosage: 1 ML, QID
  2. LANSOPRAZOLE. [Suspect]
     Active Substance: LANSOPRAZOLE
     Indication: PRODUCT USED FOR UNKNOWN INDICATION
     Dosage: 30 MG, QD  IN THE MORNING.
     Route: 048
  3. ALLOPURINOL. [Concomitant]
     Active Substance: ALLOPURINOL
     Dosage: 300 MG, QD
  4. CEFALEXIN [Concomitant]
     Active Substance: CEPHALEXIN
     Dosage: 500 MG, TID
  5. ENALAPRIL [Concomitant]
     Active Substance: ENALAPRIL
     Dosage: 20 MG, QD
  6. ACICLOVIR [Concomitant]
     Active Substance: ACYCLOVIR
     Dosage: 400 MG, BID
  7. ONDANSETRON [Concomitant]
     Active Substance: ONDANSETRON
     Dosage: 2 MG, TID
  8. PREDNISOLONE. [Concomitant]
     Active Substance: PREDNISOLONE
     Indication: CHEMOTHERAPY
     Dosage: 100 MG, QD IN THE MORNING
  9. VINCRISTINE SULFATE. [Suspect]
     Active Substance: VINCRISTINE SULFATE
     Indication: CHEMOTHERAPY
     Dosage: UNK
     Route: 042
  10. APIXABAN [Concomitant]
     Active Substance: APIXABAN
     Dosage: 5 MG, BID
  11. RITUXIMAB [Concomitant]
     Active Substance: RITUXIMAB
     Indication: CHEMOTHERAPY
     Dosage: UNK
  12. CYCLOPHOSPHAMIDE. [Concomitant]
     Active Substance: CYCLOPHOSPHAMIDE
     Indication: CHEMOTHERAPY
     Dosage: UNK
  13. DOXAZOSIN [Concomitant]
     Active Substance: DOXAZOSIN\DOXAZOSIN MESYLATE
     Dosage: 6 MG, QD

REACTIONS (3)
  - Confusional state [Recovered/Resolved]
  - Inappropriate antidiuretic hormone secretion [Recovered/Resolved]
  - Hyponatraemia [Recovered/Resolved]

NARRATIVE: CASE EVENT DATE: 20161203
